FAERS Safety Report 8261472-8 (Version None)
Quarter: 2012Q2

REPORT INFORMATION
  Report Type: 
  Country: None (occurrence: None)
  Receive Date: 20120405
  Receipt Date: 20120403
  Transmission Date: 20120825
  Serious: Yes (Disabling, Other)
  Sender: FDA-Public Use
  Company Number: US-PFIZER INC-2012084472

PATIENT
  Sex: Female
  Weight: 72.562 kg

DRUGS (3)
  1. ZOLOFT [Suspect]
     Indication: OBSESSIVE-COMPULSIVE DISORDER
  2. MELATONIN [Concomitant]
     Dosage: 5 MG, 1X/DAY
  3. ZOLOFT [Suspect]
     Indication: ANXIETY
     Dosage: 150 MG, 1X/DAY
     Route: 048

REACTIONS (3)
  - FALL [None]
  - PAIN [None]
  - INTERVERTEBRAL DISC PROTRUSION [None]
